FAERS Safety Report 23416823 (Version 2)
Quarter: 2024Q1

REPORT INFORMATION
  Report Type: Spontaneous
  Country: FR (occurrence: FR)
  Receive Date: 20240118
  Receipt Date: 20240124
  Transmission Date: 20240410
  Serious: No
  Sender: FDA-Public Use
  Company Number: FR-PFIZER INC-202400014690

PATIENT
  Age: 73 Year
  Sex: Female
  Weight: 160 kg

DRUGS (1)
  1. PAXLOVID [Suspect]
     Active Substance: NIRMATRELVIR\RITONAVIR
     Indication: COVID-19 treatment
     Dosage: [RITONAVIR 100 MG]/[RITONAVIR 100 MG]; 2X/DAY
     Dates: start: 20240114

REACTIONS (6)
  - Diarrhoea [Recovering/Resolving]
  - Taste disorder [Recovering/Resolving]
  - Discomfort [Recovering/Resolving]
  - Malaise [Recovering/Resolving]
  - Incorrect dose administered [Unknown]
  - Product packaging issue [Unknown]

NARRATIVE: CASE EVENT DATE: 20240114
